FAERS Safety Report 4572065-8 (Version None)
Quarter: 2005Q1

REPORT INFORMATION
  Report Type: 
  Country: None (occurrence: None)
  Receive Date: 20050202
  Receipt Date: 20050113
  Transmission Date: 20050727
  Serious: Yes (Hospitalization)
  Sender: FDA-Public Use
  Company Number: USA041286055

PATIENT
  Age: 54 Year
  Sex: Male

DRUGS (3)
  1. STRATTERA [Suspect]
     Indication: ATTENTION DEFICIT/HYPERACTIVITY DISORDER
     Dosage: 80 MG DAY
     Dates: start: 20030801, end: 20040601
  2. PAXIL [Concomitant]
  3. ALBUTEROL [Concomitant]

REACTIONS (14)
  - ANXIETY [None]
  - CONSTIPATION [None]
  - DEHYDRATION [None]
  - DIZZINESS [None]
  - DRUG INTERACTION [None]
  - DYSURIA [None]
  - HOMICIDAL IDEATION [None]
  - HYPERTENSION [None]
  - HYPOTENSION [None]
  - LOSS OF CONSCIOUSNESS [None]
  - SUICIDAL IDEATION [None]
  - SYNCOPE [None]
  - TACHYCARDIA [None]
  - URINARY RETENTION [None]
